FAERS Safety Report 21840622 (Version 26)
Quarter: 2023Q4

REPORT INFORMATION
  Report Type: Report from Study
  Country: CN (occurrence: None)
  Receive Date: 20230110
  Receipt Date: 20231124
  Transmission Date: 20240110
  Serious: Yes (Hospitalization)
  Sender: FDA-Public Use
  Company Number: CN-ROCHE-3257795

PATIENT
  Age: 65 Year
  Sex: Female
  Weight: 49.2 kg

DRUGS (58)
  1. MOSUNETUZUMAB [Suspect]
     Active Substance: MOSUNETUZUMAB
     Indication: Follicular lymphoma
     Route: 042
     Dates: start: 20220628
  2. MOSUNETUZUMAB [Suspect]
     Active Substance: MOSUNETUZUMAB
     Dosage: ON 12/OCT/2022, AT 10:31 AM TO 12:33 PM, MOST RECENT DOSE 30 MG OF STUDY DRUG PRIOR TO AE/SAE
     Route: 042
  3. LACTULOSE [Concomitant]
     Active Substance: LACTULOSE
     Indication: Coronary artery disease
     Route: 048
     Dates: start: 20221128, end: 20221207
  4. LACTULOSE [Concomitant]
     Active Substance: LACTULOSE
     Indication: Constipation
     Route: 048
     Dates: start: 20221228, end: 20230111
  5. LACTULOSE [Concomitant]
     Active Substance: LACTULOSE
     Route: 048
     Dates: start: 20230112
  6. POTASSIUM CHLORIDE [Concomitant]
     Active Substance: POTASSIUM CHLORIDE
     Route: 048
     Dates: start: 20221128, end: 20221128
  7. POTASSIUM CHLORIDE [Concomitant]
     Active Substance: POTASSIUM CHLORIDE
     Route: 042
     Dates: start: 20221204, end: 20221206
  8. POTASSIUM CHLORIDE [Concomitant]
     Active Substance: POTASSIUM CHLORIDE
     Route: 048
     Dates: start: 20230223, end: 20230301
  9. POTASSIUM CHLORIDE [Concomitant]
     Active Substance: POTASSIUM CHLORIDE
     Route: 048
     Dates: start: 20221129, end: 20221207
  10. INOSINE [Concomitant]
     Active Substance: INOSINE
     Indication: Coronary artery disease
     Route: 042
     Dates: start: 20221128, end: 20221202
  11. METHYLCOBALAMIN [Concomitant]
     Active Substance: METHYLCOBALAMIN
     Indication: Coronary artery disease
     Route: 048
     Dates: start: 20221227, end: 20230111
  12. COMPOUND PHELLODENDRON SOLUTION SMEAR (UNK INGREDIENTS) [Concomitant]
     Indication: Coronary artery disease
     Route: 062
     Dates: start: 20221201, end: 20221205
  13. ACETYLCYSTEINE [Concomitant]
     Active Substance: ACETYLCYSTEINE
     Route: 055
     Dates: start: 20230105, end: 20230131
  14. ACETYLCYSTEINE [Concomitant]
     Active Substance: ACETYLCYSTEINE
     Route: 055
     Dates: start: 20230117, end: 20230131
  15. ACETYLCYSTEINE [Concomitant]
     Active Substance: ACETYLCYSTEINE
     Route: 055
     Dates: start: 20230103, end: 20230105
  16. ACETYLCYSTEINE [Concomitant]
     Active Substance: ACETYLCYSTEINE
     Route: 055
     Dates: start: 20230117, end: 20230131
  17. IBUPROFEN [Concomitant]
     Active Substance: IBUPROFEN
     Route: 042
     Dates: start: 20230119, end: 20230123
  18. IBUPROFEN [Concomitant]
     Active Substance: IBUPROFEN
     Route: 042
     Dates: start: 20230119, end: 20230123
  19. IBUPROFEN [Concomitant]
     Active Substance: IBUPROFEN
     Route: 042
     Dates: start: 20230117, end: 20230117
  20. IBUPROFEN [Concomitant]
     Active Substance: IBUPROFEN
     Route: 042
     Dates: start: 20230121, end: 20230121
  21. CELECOXIB [Concomitant]
     Active Substance: CELECOXIB
     Route: 048
     Dates: start: 20230121, end: 20230131
  22. MOXIFLOXACIN HYDROCHLORIDE [Concomitant]
     Active Substance: MOXIFLOXACIN HYDROCHLORIDE\MOXIFLOXACIN HYDROCHLORIDE MONOHYDRATE
     Route: 042
     Dates: start: 20230218, end: 20230301
  23. FLUCONAZOLE [Concomitant]
     Active Substance: FLUCONAZOLE
     Route: 042
     Dates: start: 20230219, end: 20230220
  24. FLUCONAZOLE [Concomitant]
     Active Substance: FLUCONAZOLE
     Route: 042
     Dates: start: 20230221, end: 20230223
  25. FLUCONAZOLE [Concomitant]
     Active Substance: FLUCONAZOLE
     Route: 042
     Dates: start: 20230221, end: 20230223
  26. SODIUM BICARBONATE [Concomitant]
     Active Substance: SODIUM BICARBONATE
     Route: 048
     Dates: start: 20220628
  27. GLYCERIN [Concomitant]
     Active Substance: GLYCERIN
     Indication: Constipation
     Route: 054
     Dates: start: 20221128, end: 20221213
  28. GLYCERIN [Concomitant]
     Active Substance: GLYCERIN
     Indication: Constipation
     Route: 054
     Dates: start: 20221128, end: 20221207
  29. GLYCERIN [Concomitant]
     Active Substance: GLYCERIN
     Route: 054
     Dates: start: 20221128, end: 20221201
  30. METHYLPREDNISOLONE SODIUM SUCCINATE [Concomitant]
     Active Substance: METHYLPREDNISOLONE SODIUM SUCCINATE
     Indication: Pneumonia
     Route: 042
     Dates: start: 20230105, end: 20230117
  31. METHYLPREDNISOLONE SODIUM SUCCINATE [Concomitant]
     Active Substance: METHYLPREDNISOLONE SODIUM SUCCINATE
     Route: 042
     Dates: start: 20230118, end: 20230129
  32. BIAPENEM [Concomitant]
     Active Substance: BIAPENEM
     Route: 042
     Dates: start: 20230121, end: 20230131
  33. AMMONIUM GLYCYRRHIZATE\CYSTEINE [Concomitant]
     Active Substance: AMMONIUM GLYCYRRHIZATE\CYSTEINE
     Route: 042
     Dates: start: 20230214, end: 20230223
  34. ROXATIDINE ACETATE HYDROCHLORIDE [Concomitant]
     Active Substance: ROXATIDINE ACETATE HYDROCHLORIDE
     Route: 042
     Dates: start: 20230219, end: 20230228
  35. ENOXAPARIN SODIUM [Concomitant]
     Active Substance: ENOXAPARIN SODIUM
     Dosage: 4000 OTHER
     Route: 055
     Dates: start: 20230201, end: 20230301
  36. ENOXAPARIN SODIUM [Concomitant]
     Active Substance: ENOXAPARIN SODIUM
     Dosage: 4000 OTHER
     Route: 058
     Dates: start: 20230216, end: 20230301
  37. SODIUM BICARBONATE RINGER^S [Concomitant]
     Route: 042
     Dates: start: 20230214, end: 20230301
  38. MEROPENEM [Concomitant]
     Active Substance: MEROPENEM
     Indication: Pneumonia
     Route: 042
     Dates: start: 20230104, end: 20230112
  39. MEROPENEM [Concomitant]
     Active Substance: MEROPENEM
     Route: 042
     Dates: start: 20230112, end: 20230116
  40. DEXAMETHASONE SODIUM PHOSPHATE [Concomitant]
     Active Substance: DEXAMETHASONE SODIUM PHOSPHATE
     Indication: Pneumonia
     Route: 042
     Dates: start: 20230104, end: 20230105
  41. DEXAMETHASONE SODIUM PHOSPHATE [Concomitant]
     Active Substance: DEXAMETHASONE SODIUM PHOSPHATE
     Route: 042
     Dates: start: 20230121, end: 20230121
  42. CIFRAN [Concomitant]
     Route: 042
     Dates: start: 20230106, end: 20230116
  43. CLOPIDOGREL BISULFATE [Concomitant]
     Active Substance: CLOPIDOGREL BISULFATE
     Indication: Coronary artery disease
     Route: 048
     Dates: start: 20221128, end: 20221207
  44. ASPIRIN [Concomitant]
     Active Substance: ASPIRIN
     Route: 048
     Dates: start: 20221128, end: 20221207
  45. PITAVASTATIN CALCIUM [Concomitant]
     Active Substance: PITAVASTATIN CALCIUM
     Indication: Coronary artery disease
     Route: 048
     Dates: start: 20221128, end: 20221207
  46. SODIUM CHLORIDE [Concomitant]
     Active Substance: SODIUM CHLORIDE
     Indication: Dehydration
     Route: 042
     Dates: start: 20230104, end: 20230109
  47. MOXIFLOXACIN HYDROCHLORIDE [Concomitant]
     Active Substance: MOXIFLOXACIN HYDROCHLORIDE\MOXIFLOXACIN HYDROCHLORIDE MONOHYDRATE
     Indication: Pneumonia
     Route: 048
     Dates: start: 20230301, end: 20230312
  48. LORAZEPAM [Concomitant]
     Active Substance: LORAZEPAM
     Route: 048
     Dates: start: 20221230, end: 20221230
  49. EPINEPHRINE HYDROCHLORIDE [Concomitant]
     Active Substance: EPINEPHRINE HYDROCHLORIDE
     Route: 061
     Dates: start: 20230216, end: 20230216
  50. LIDOCAINE HYDROCHLORIDE [Concomitant]
     Active Substance: DEXTROSE MONOHYDRATE\EPINEPHRINE\EPINEPHRINE BITARTRATE\LIDOCAINE\LIDOCAINE HYDROCHLORIDE\LIDOCAINE
     Route: 061
     Dates: start: 20230216, end: 20230216
  51. TRIMETAZIDINE DIHYDROCHLORIDE [Concomitant]
     Active Substance: TRIMETAZIDINE DIHYDROCHLORIDE
     Route: 048
     Dates: start: 20230219, end: 20230310
  52. METOCLOPRAMIDE [Concomitant]
     Active Substance: METOCLOPRAMIDE
     Route: 030
     Dates: start: 20221205, end: 20221205
  53. HERBALS [Concomitant]
     Active Substance: HERBALS
     Indication: Pneumonia
     Route: 042
     Dates: start: 20230118, end: 20230121
  54. ASTRAGALUS [Concomitant]
     Indication: Pneumonia
     Route: 065
     Dates: start: 20230118, end: 20230121
  55. METOPROLOL SUCCINATE [Concomitant]
     Active Substance: METOPROLOL SUCCINATE
     Indication: Product used for unknown indication
     Route: 048
     Dates: start: 20230120, end: 20230131
  56. VITAMIN C [Concomitant]
     Active Substance: ASCORBIC ACID
     Route: 042
     Dates: start: 20221227, end: 20230104
  57. VITAMIN B6 [Concomitant]
     Active Substance: PYRIDOXINE HYDROCHLORIDE
     Route: 042
     Dates: start: 20221227, end: 20230104
  58. ALLOPURINOL [Concomitant]
     Active Substance: ALLOPURINOL
     Route: 048
     Dates: start: 20220628

REACTIONS (4)
  - Herpes zoster [Recovered/Resolved]
  - Chest discomfort [Recovered/Resolved]
  - COVID-19 pneumonia [Recovered/Resolved]
  - Post herpetic neuralgia [Not Recovered/Not Resolved]

NARRATIVE: CASE EVENT DATE: 20221128
